FAERS Safety Report 13640073 (Version 1)
Quarter: 2017Q2

REPORT INFORMATION
  Report Type: Report from Study
  Country: JP (occurrence: JP)
  Receive Date: 20170609
  Receipt Date: 20170609
  Transmission Date: 20170830
  Serious: Yes (Hospitalization, Other)
  Sender: FDA-Public Use
  Company Number: JP-009507513-1611JPN000189J

PATIENT
  Age: 46 Year
  Sex: Male

DRUGS (85)
  1. TRUVADA [Concomitant]
     Active Substance: EMTRICITABINE\TENOFOVIR DISOPROXIL FUMARATE
     Indication: ACQUIRED IMMUNODEFICIENCY SYNDROME
     Dosage: 1 DF, QD
     Route: 048
     Dates: start: 20090120, end: 20160202
  2. SOLACET F [Concomitant]
     Indication: FLUID REPLACEMENT
     Dosage: 500 ML, QD
     Route: 051
     Dates: start: 20160201, end: 20160203
  3. FIRSTCIN [Concomitant]
     Active Substance: CEFOZOPRAN HYDROCHLORIDE
     Dosage: 1 G, QD
     Route: 051
     Dates: start: 20160201, end: 20160201
  4. ISOTONIC SODIUM CHLORIDE BIOSEL [Concomitant]
     Dosage: 50 ML, QD
     Route: 051
     Dates: start: 20160205, end: 20160208
  5. ISOTONIC SODIUM CHLORIDE BIOSEL [Concomitant]
     Dosage: 100 ML, BID
     Route: 051
     Dates: start: 20160216, end: 20160217
  6. NEOLAMIN 3B INTRAVENOUS [Concomitant]
     Indication: VITAMIN SUPPLEMENTATION
     Dosage: 10 ML, QD
     Route: 051
     Dates: start: 20160202, end: 20160203
  7. ARASENA-A [Concomitant]
     Active Substance: VIDARABINE
     Indication: PROPHYLAXIS
     Dosage: 300 MG, QD
     Route: 065
     Dates: start: 20160202, end: 20160208
  8. SERENACE [Concomitant]
     Active Substance: HALOPERIDOL
     Indication: SEDATION
     Dosage: 5 MG, QD
     Route: 065
     Dates: start: 20160207, end: 20160208
  9. PRODIF [Concomitant]
     Active Substance: FOSFLUCONAZOLE
     Indication: PROPHYLAXIS
     Dosage: 200 MG, QD
     Route: 051
     Dates: start: 20160208, end: 20160218
  10. FULCALIQ [Concomitant]
     Active Substance: AMINO ACIDS\CARBOHYDRATES\ELECTROLYTES NOS\VITAMINS
     Dosage: 903 ML, BID
     Route: 051
     Dates: start: 20160208, end: 20160301
  11. ISENTRESS [Suspect]
     Active Substance: RALTEGRAVIR POTASSIUM
     Indication: ACQUIRED IMMUNODEFICIENCY SYNDROME
     Dosage: 800 MG, QD
     Route: 048
     Dates: start: 20090120, end: 20160202
  12. MEROPENEM. [Concomitant]
     Active Substance: MEROPENEM
     Dosage: 0.5 G, BID
     Route: 051
     Dates: start: 20160201, end: 20160201
  13. ISOTONIC SODIUM CHLORIDE BIOSEL [Concomitant]
     Dosage: 100 ML, BID
     Route: 051
     Dates: start: 20160201, end: 20160201
  14. ISOTONIC SODIUM CHLORIDE BIOSEL [Concomitant]
     Dosage: 100 ML, TID
     Route: 051
     Dates: start: 20160201, end: 20160201
  15. ISOTONIC SODIUM CHLORIDE BIOSEL [Concomitant]
     Dosage: 100 ML, QD
     Route: 051
     Dates: start: 20160202, end: 20160208
  16. ISOTONIC SODIUM CHLORIDE BIOSEL [Concomitant]
     Dosage: 100 ML, QD
     Route: 051
     Dates: start: 20160207, end: 20160208
  17. GLYCEOL (FRUCTOSE (+) GLYCERIN (+) SODIUM CHLORIDE) [Concomitant]
     Active Substance: GLYCERIN
     Dosage: 200 ML, BID
     Route: 051
     Dates: start: 20160202, end: 20160204
  18. VANCOMYCIN [Concomitant]
     Active Substance: VANCOMYCIN
     Indication: MENINGITIS
     Dosage: 1 G, BID
     Route: 065
     Dates: start: 20160203, end: 20160204
  19. VANCOMYCIN [Concomitant]
     Active Substance: VANCOMYCIN
     Dosage: 1 G, QD
     Route: 065
     Dates: start: 20160205, end: 20160208
  20. BISOLVON [Concomitant]
     Active Substance: BROMHEXINE HYDROCHLORIDE
     Indication: PNEUMONIA
     Dosage: 4 MG, BID
     Route: 065
     Dates: start: 20160205, end: 20160218
  21. VOLVIX [Concomitant]
     Indication: VITAMIN SUPPLEMENTATION
     Dosage: 2 ML, QD
     Route: 051
     Dates: start: 20160208, end: 20160310
  22. WYPAX [Concomitant]
     Active Substance: LORAZEPAM
     Indication: DEPRESSION
     Dosage: 3 MG, TID
     Route: 048
     Dates: start: 20150407, end: 20150420
  23. HOCHU-EKKI-TO [Concomitant]
     Active Substance: UNSPECIFIED INGREDIENT
     Indication: MALAISE
     Dosage: 2.5 G, TID
     Route: 048
     Dates: start: 20150407, end: 20160202
  24. URSO [Concomitant]
     Active Substance: URSODIOL
     Indication: HEPATIC FUNCTION ABNORMAL
     Dosage: 200 MG, BID
     Route: 048
     Dates: start: 20150421, end: 20160126
  25. DEPAS [Concomitant]
     Active Substance: ETIZOLAM
     Indication: DEPRESSION
     Dosage: 1 MG, UNK
     Route: 048
     Dates: start: 20151110
  26. MEROPENEM. [Concomitant]
     Active Substance: MEROPENEM
     Indication: PYREXIA
     Dosage: 0.5 G, QD
     Route: 051
     Dates: start: 20151221, end: 20151221
  27. ISOTONIC SODIUM CHLORIDE BIOSEL [Concomitant]
     Dosage: 50 ML, QD
     Route: 051
     Dates: start: 20160130, end: 20160130
  28. ISOTONIC SODIUM CHLORIDE BIOSEL [Concomitant]
     Dosage: 100 ML, BID
     Route: 051
     Dates: start: 20160203, end: 20160204
  29. ISOTONIC SODIUM CHLORIDE BIOSEL [Concomitant]
     Dosage: 100 ML, QD
     Route: 051
     Dates: start: 20160209, end: 20160214
  30. GLYCEOL (FRUCTOSE (+) GLYCERIN (+) SODIUM CHLORIDE) [Concomitant]
     Active Substance: GLYCERIN
     Dosage: 200 ML, QD
     Route: 051
     Dates: start: 20160205, end: 20160205
  31. PRECEDEX [Concomitant]
     Active Substance: DEXMEDETOMIDINE HYDROCHLORIDE
     Indication: SEDATION
     Dosage: 200 MICROGRAM, QD
     Route: 051
     Dates: start: 20160205, end: 20160208
  32. LANSOPRAZOLE. [Concomitant]
     Active Substance: LANSOPRAZOLE
     Indication: GASTRITIS PROPHYLAXIS
     Dosage: 30 MG, QD
     Route: 048
     Dates: start: 20160218, end: 20160302
  33. SOLYUGEN G [Concomitant]
     Dosage: 500 ML, QD
     Route: 051
     Dates: start: 20160201, end: 20160201
  34. VANCOMYCIN [Concomitant]
     Active Substance: VANCOMYCIN
     Dosage: 1.5 G, QD
     Route: 065
     Dates: start: 20160208, end: 20160208
  35. VANCOMYCIN [Concomitant]
     Active Substance: VANCOMYCIN
     Dosage: 1.5 G, QD
     Route: 065
     Dates: start: 20160218, end: 20160220
  36. VENOGLOBULIN IH [Concomitant]
     Active Substance: HUMAN IMMUNOGLOBULIN G
     Indication: PNEUMONIA
     Dosage: 5 G, QD
     Route: 051
     Dates: start: 20160204, end: 20160205
  37. FENTANYL. [Concomitant]
     Active Substance: FENTANYL
     Dosage: 0.5 MG, QD
     Route: 065
     Dates: start: 20160205, end: 20160205
  38. POTASSIUM CHLORIDE. [Concomitant]
     Active Substance: POTASSIUM CHLORIDE
     Indication: ELECTROLYTE SUBSTITUTION THERAPY
     Dosage: 20 MEQ, QD
     Route: 051
     Dates: start: 20160208, end: 20160208
  39. FULCALIQ [Concomitant]
     Active Substance: AMINO ACIDS\CARBOHYDRATES\ELECTROLYTES NOS\VITAMINS
     Indication: FLUID REPLACEMENT
     Dosage: 903 ML, QD
     Route: 051
     Dates: start: 20160208, end: 20160208
  40. RISPERDAL [Concomitant]
     Active Substance: RISPERIDONE
     Indication: PANIC DISORDER
     Dosage: 0.5 MG, QD
     Route: 048
     Dates: start: 20150407, end: 20150420
  41. LEXAPRO [Concomitant]
     Active Substance: ESCITALOPRAM OXALATE
     Indication: PANIC DISORDER
     Dosage: 10 MG, QD
     Route: 048
     Dates: start: 20150421, end: 20150706
  42. LENDORMIN D [Concomitant]
     Active Substance: BROTIZOLAM
     Indication: DEPRESSION
     Dosage: 0.25 MG, QD
     Route: 048
     Dates: end: 20160202
  43. LEXOTAN [Concomitant]
     Active Substance: BROMAZEPAM
     Dosage: 5 MG, TID
     Route: 048
     Dates: start: 20150421, end: 20160202
  44. LOXONIN [Concomitant]
     Active Substance: LOXOPROFEN SODIUM
     Indication: ANTIPYRESIS
     Dosage: 60 MG, UNKNOWN
     Route: 065
     Dates: start: 20150421
  45. ISOTONIC SODIUM CHLORIDE BIOSEL [Concomitant]
     Indication: MENINGITIS
     Dosage: 100 ML, TID
     Route: 051
     Dates: start: 20160130, end: 20160131
  46. ISOTONIC SODIUM CHLORIDE BIOSEL [Concomitant]
     Dosage: 100 ML, TID
     Route: 051
     Dates: start: 20160202, end: 20160302
  47. ISOTONIC SODIUM CHLORIDE BIOSEL [Concomitant]
     Dosage: 50 ML, QD
     Route: 051
     Dates: start: 20160205, end: 20160205
  48. SOLU-CORTEF [Concomitant]
     Active Substance: HYDROCORTISONE SODIUM SUCCINATE
     Indication: ECZEMA
     Dosage: 100 MG, QD
     Route: 051
     Dates: start: 20160130, end: 20160130
  49. PENTAGIN [Concomitant]
     Active Substance: PENTAZOCINE HYDROCHLORIDE
     Indication: MENINGITIS
     Dosage: 15 MG, QD
     Route: 065
     Dates: start: 20160130, end: 20160130
  50. TAKEPRON [Concomitant]
     Active Substance: LANSOPRAZOLE
     Indication: GASTRITIS PROPHYLAXIS
     Dosage: 30 MG, BID
     Route: 065
     Dates: start: 20160204, end: 20160218
  51. SOLDEM 3A [Concomitant]
     Active Substance: CARBOHYDRATES\POTASSIUM CHLORIDE\SODIUM CHLORIDE\SODIUM LACTATE
     Indication: FLUID REPLACEMENT
     Dosage: 500 ML, QD
     Route: 051
     Dates: start: 20160204, end: 20160207
  52. MIYA-BM [Concomitant]
     Active Substance: CLOSTRIDIUM BUTYRICUM SPORES STRAIN M-55
     Indication: DIARRHOEA
     Dosage: 1 G, TID
     Route: 048
     Dates: start: 20160218, end: 20160302
  53. ISENTRESS [Suspect]
     Active Substance: RALTEGRAVIR POTASSIUM
     Dosage: 400 MG, BID
     Route: 048
     Dates: start: 20160307
  54. INTELENCE [Concomitant]
     Active Substance: ETRAVIRINE
     Indication: ACQUIRED IMMUNODEFICIENCY SYNDROME
     Dosage: 400 MG, QD
     Route: 048
     Dates: start: 20100515, end: 20160202
  55. SOLYUGEN G [Concomitant]
     Indication: FLUID REPLACEMENT
     Dosage: 500 ML, QD
     Route: 051
     Dates: start: 20160127, end: 20160203
  56. SOLYUGEN G [Concomitant]
     Dosage: 500 ML, BID
     Route: 051
     Dates: start: 20160202, end: 20160203
  57. FIRSTCIN [Concomitant]
     Active Substance: CEFOZOPRAN HYDROCHLORIDE
     Indication: MENINGITIS
     Dosage: 1 G, TID
     Route: 051
     Dates: start: 20160130, end: 20160131
  58. GLYCEOL (FRUCTOSE (+) GLYCERIN (+) SODIUM CHLORIDE) [Concomitant]
     Active Substance: GLYCERIN
     Indication: MENINGITIS
     Dosage: 200 ML, QD
     Route: 051
     Dates: start: 20160201, end: 20160201
  59. PROPOFOL. [Concomitant]
     Active Substance: PROPOFOL
     Indication: SEDATION
     Dosage: 1 G, QD
     Route: 051
     Dates: start: 20160204, end: 20160205
  60. FENTANYL. [Concomitant]
     Active Substance: FENTANYL
     Indication: SEDATION
     Dosage: 0.25 MG, QD
     Route: 065
     Dates: start: 20160205, end: 20160205
  61. DEXTROSE. [Concomitant]
     Active Substance: DEXTROSE
     Indication: PANCREATITIS
     Dosage: 500 ML, BID
     Route: 051
     Dates: start: 20160208, end: 20160302
  62. BACTRAMIN [Concomitant]
     Active Substance: SULFAMETHOXAZOLE\TRIMETHOPRIM
     Indication: PNEUMOCYSTIS JIROVECII PNEUMONIA
     Dosage: 10 ML, BID
     Route: 065
     Dates: start: 20160209, end: 20160209
  63. MYSLEE [Concomitant]
     Active Substance: ZOLPIDEM TARTRATE
     Indication: DEPRESSION
     Dosage: 10 MG, QD
     Route: 048
     Dates: end: 20160331
  64. LEXOTAN [Concomitant]
     Active Substance: BROMAZEPAM
     Indication: PANIC DISORDER
     Dosage: 2 MG, TID
     Route: 048
     Dates: start: 20150421, end: 20151215
  65. CEFCAPENE PIVOXIL HYDROCHLORIDE [Concomitant]
     Active Substance: CEFCAPENE PIVOXIL HYDROCHLORIDE
     Indication: PYREXIA
     Dosage: 100 MG, TID
     Route: 048
     Dates: start: 20151221, end: 20151228
  66. PRIMPERAN [Concomitant]
     Active Substance: METOCLOPRAMIDE HYDROCHLORIDE
     Indication: NAUSEA
     Dosage: 10 MG, QD
     Route: 065
     Dates: start: 20160127, end: 20160203
  67. ISOTONIC SODIUM CHLORIDE BIOSEL [Concomitant]
     Dosage: 20 ML, BID
     Route: 051
     Dates: start: 20160204, end: 20160218
  68. ISOTONIC SODIUM CHLORIDE BIOSEL [Concomitant]
     Dosage: 100 ML, QD
     Route: 051
     Dates: start: 20160205, end: 20160208
  69. ISOTONIC SODIUM CHLORIDE BIOSEL [Concomitant]
     Dosage: 100 ML, QD
     Route: 051
     Dates: start: 20160208, end: 20160208
  70. ISOTONIC SODIUM CHLORIDE BIOSEL [Concomitant]
     Dosage: 100 ML, QD
     Route: 051
     Dates: start: 20160218, end: 20160220
  71. ESLAX INTRAVENOUS 50MG/5.0ML [Concomitant]
     Active Substance: ROCURONIUM BROMIDE
     Indication: PNEUMONIA
     Dosage: 50 MG, QD
     Route: 051
     Dates: start: 20160204, end: 20160204
  72. KENKETU NONTHRON [Concomitant]
     Indication: ANTITHROMBIN III DECREASED
     Dosage: 1500 IU, QD
     Route: 051
     Dates: start: 20160204, end: 20160204
  73. DEXTROSE. [Concomitant]
     Active Substance: DEXTROSE
     Dosage: 250 ML, BID
     Route: 051
     Dates: start: 20160209, end: 20160209
  74. BACTRAMIN [Concomitant]
     Active Substance: SULFAMETHOXAZOLE\TRIMETHOPRIM
     Dosage: 10 ML, TID
     Route: 065
     Dates: start: 20160210, end: 20160220
  75. PAXIL [Concomitant]
     Active Substance: PAROXETINE HYDROCHLORIDE
     Indication: DEPRESSION
     Dosage: 5 MG, QD
     Route: 048
     Dates: start: 20150407, end: 20150420
  76. MUCODYNE [Concomitant]
     Active Substance: CARBOCYSTEINE
     Indication: SPUTUM ABNORMAL
     Dosage: 500 MG, TID
     Route: 048
     Dates: start: 20160218, end: 20160302
  77. DIFLUCAN [Concomitant]
     Active Substance: FLUCONAZOLE
     Indication: PROPHYLAXIS
     Dosage: 100 MG, QD
     Route: 065
     Dates: start: 20160218, end: 20160310
  78. MEROPENEM. [Concomitant]
     Active Substance: MEROPENEM
     Dosage: 0.5 G, TID
     Route: 051
     Dates: start: 20160202, end: 20160302
  79. VANCOMYCIN [Concomitant]
     Active Substance: VANCOMYCIN
     Dosage: 1.5 G, BID
     Route: 065
     Dates: start: 20160209, end: 20160214
  80. VANCOMYCIN [Concomitant]
     Active Substance: VANCOMYCIN
     Dosage: 1 G, BID
     Route: 065
     Dates: start: 20160216, end: 20160216
  81. BFLUID [Concomitant]
     Active Substance: AMINO ACIDS\DEXTROSE\ELECTROLYTES NOS\VITAMINS
     Indication: FLUID REPLACEMENT
     Dosage: 500 ML, QD
     Route: 051
     Dates: start: 20160207, end: 20160208
  82. GABEXATE MESYLATE [Concomitant]
     Active Substance: GABEXATE MESYLATE
     Indication: PANCREATITIS
     Dosage: 100 MG, BID
     Route: 051
     Dates: start: 20160208, end: 20160302
  83. DEXTROSE. [Concomitant]
     Active Substance: DEXTROSE
     Dosage: 250 ML, TID
     Route: 051
     Dates: start: 20160210, end: 20160220
  84. WASSER-V GRANULES [Concomitant]
     Indication: MALAISE
     Dosage: 1 G, QD
     Route: 048
     Dates: start: 20150407, end: 20160202
  85. MUCOSTA [Concomitant]
     Active Substance: REBAMIPIDE
     Indication: GASTRITIS PROPHYLAXIS
     Dosage: 1 DF, TID
     Route: 048
     Dates: start: 20160218, end: 20160302

REACTIONS (13)
  - Pneumonia [Recovering/Resolving]
  - Diarrhoea [Recovered/Resolved]
  - Malaise [Recovering/Resolving]
  - Hepatic function abnormal [Not Recovered/Not Resolved]
  - Eczema [Recovering/Resolving]
  - Pancreatitis [Not Recovered/Not Resolved]
  - Meningitis bacterial [Not Recovered/Not Resolved]
  - Sputum increased [Recovering/Resolving]
  - Nausea [Not Recovered/Not Resolved]
  - Pneumocystis jirovecii pneumonia [Recovering/Resolving]
  - Antithrombin III decreased [Recovered/Resolved]
  - Panic disorder [Not Recovered/Not Resolved]
  - Pyrexia [Recovering/Resolving]

NARRATIVE: CASE EVENT DATE: 20150407
